FAERS Safety Report 11341722 (Version 1)
Quarter: 2015Q3

REPORT INFORMATION
  Report Type: Report from Study
  Country: GB (occurrence: GB)
  Receive Date: 20150805
  Receipt Date: 20150805
  Transmission Date: 20151125
  Serious: Yes (Hospitalization, Other)
  Sender: FDA-Public Use
  Company Number: GB-BRISTOL-MYERS SQUIBB COMPANY-BMS-2015-049992

PATIENT
  Sex: Male

DRUGS (1)
  1. IPILIMUMAB [Suspect]
     Active Substance: IPILIMUMAB
     Indication: MALIGNANT MELANOMA
     Dosage: 245 MG, UNK
     Route: 042
     Dates: start: 20150216, end: 20150511

REACTIONS (2)
  - Rectal haemorrhage [Not Recovered/Not Resolved]
  - Colitis [Unknown]

NARRATIVE: CASE EVENT DATE: 20150617
